FAERS Safety Report 5882784-9 (Version None)
Quarter: 2008Q3

REPORT INFORMATION
  Report Type: 
  Country: None (occurrence: None)
  Receive Date: 20080913
  Receipt Date: 20080818
  Transmission Date: 20090109
  Serious: No
  Sender: FDA-Public Use
  Company Number: US-ABBOTT-08P-163-0471545-00

PATIENT
  Sex: Female
  Weight: 88.984 kg

DRUGS (4)
  1. HUMIRA [Suspect]
     Indication: RHEUMATOID ARTHRITIS
     Route: 050
     Dates: end: 20080718
  2. FENTANYL [Concomitant]
     Indication: PAIN
     Route: 062
  3. LIDOCAINE HYDROCHLORIDE [Concomitant]
     Indication: PAIN
     Route: 062
  4. SULFASALAZINE [Concomitant]
     Indication: ARTHRITIS
     Route: 048
     Dates: start: 20080718

REACTIONS (3)
  - RED BLOOD CELL SEDIMENTATION RATE INCREASED [None]
  - RESPIRATORY TRACT INFECTION [None]
  - SINUSITIS [None]
